APPROVED DRUG PRODUCT: AMITRIPTYLINE HYDROCHLORIDE
Active Ingredient: AMITRIPTYLINE HYDROCHLORIDE
Strength: 150MG
Dosage Form/Route: TABLET;ORAL
Application: A202446 | Product #006 | TE Code: AB
Applicant: ACCORD HEALTHCARE INC
Approved: Jun 4, 2014 | RLD: No | RS: No | Type: RX